FAERS Safety Report 8815805 (Version 1)
Quarter: 2012Q4

REPORT INFORMATION
  Report Type: Report from Study
  Country: US (occurrence: US)
  Receive Date: 20120928
  Receipt Date: 20120928
  Transmission Date: 20130627
  Serious: Yes (Other)
  Sender: FDA-Public Use
  Company Number: US-ABBOTT-12P-163-0981989-00

PATIENT
  Age: 52 None
  Sex: Female

DRUGS (4)
  1. HUMIRA [Suspect]
     Indication: CROHN^S DISEASE
  2. HUMIRA [Suspect]
     Indication: RHEUMATOID ARTHRITIS
  3. FLUTICASONE [Concomitant]
     Indication: HYPERSENSITIVITY
  4. PREDNISONE [Concomitant]

REACTIONS (8)
  - Cartilage injury [Unknown]
  - Antibody test positive [Unknown]
  - Crohn^s disease [Not Recovered/Not Resolved]
  - Diarrhoea [Not Recovered/Not Resolved]
  - Device malfunction [Unknown]
  - Incorrect dose administered [Unknown]
  - Injection site haemorrhage [Not Recovered/Not Resolved]
  - Injection site papule [Recovering/Resolving]
